FAERS Safety Report 14473115 (Version 1)
Quarter: 2018Q1

REPORT INFORMATION
  Report Type: Spontaneous
  Country: US (occurrence: US)
  Receive Date: 20180201
  Receipt Date: 20180201
  Transmission Date: 20180509
  Serious: No
  Sender: FDA-Public Use
  Company Number: US-AUROBINDO-AUR-APL-2017-30545

PATIENT
  Sex: Female
  Weight: 55.79 kg

DRUGS (2)
  1. VALPROIC ACID. [Concomitant]
     Active Substance: VALPROIC ACID
     Indication: STRESS
     Dosage: 600 MG IN THE MORNING, 200 MG IN THE AFTERNOON AND NIGHT
  2. DULOXETINE DELAYED-RELEASE CAPSULES USP 60 MG [Suspect]
     Active Substance: DULOXETINE HYDROCHLORIDE
     Indication: PRODUCT USED FOR UNKNOWN INDICATION
     Dosage: 30 MG, TWO TIMES A DAY
     Route: 065

REACTIONS (5)
  - Blood pressure increased [Unknown]
  - Feeling hot [Unknown]
  - Drug ineffective [Unknown]
  - Incorrect dose administered [Unknown]
  - Hyperhidrosis [Unknown]
